FAERS Safety Report 4953170-0 (Version None)
Quarter: 2006Q1

REPORT INFORMATION
  Report Type: 
  Country: None (occurrence: None)
  Receive Date: 20060324
  Receipt Date: 20051019
  Transmission Date: 20060701
  Serious: Yes (Hospitalization)
  Sender: FDA-Public Use
  Company Number: US-MERCK-0510USA08384

PATIENT
  Age: 57 Year
  Sex: Female
  Weight: 82 kg

DRUGS (2)
  1. VIOXX [Suspect]
     Indication: ARTHRITIS
     Route: 048
     Dates: start: 19990101, end: 20040901
  2. TYLENOL [Concomitant]
     Route: 065

REACTIONS (14)
  - BACK PAIN [None]
  - BLOOD CHOLESTEROL INCREASED [None]
  - CARPAL TUNNEL SYNDROME [None]
  - CEREBROVASCULAR ACCIDENT [None]
  - COUGH [None]
  - FATIGUE [None]
  - HYPERLIPIDAEMIA [None]
  - MUSCULOSKELETAL CHEST PAIN [None]
  - NEUROPATHY [None]
  - PULMONARY FIBROSIS [None]
  - TONSILLAR DISORDER [None]
  - TRANSIENT ISCHAEMIC ATTACK [None]
  - TRIGGER FINGER [None]
  - WEIGHT INCREASED [None]
